FAERS Safety Report 5491457-6 (Version None)
Quarter: 2007Q4

REPORT INFORMATION
  Report Type: 
  Country: None (occurrence: None)
  Receive Date: 20071018
  Receipt Date: 20071005
  Transmission Date: 20080405
  Serious: Yes (Other)
  Sender: FDA-Public Use
  Company Number: 2007S1009977

PATIENT
  Age: 60 Year
  Sex: Male

DRUGS (4)
  1. METOPROLOL TARTRATE [Suspect]
     Dosage: 75 MG; TWICE A DAY; , 50 MG; DAILY;
  2. VALSARTAN [Suspect]
     Dosage: 160 MG; TWICE A DAY;
  3. HYDROCHLOROTHIAZIDE [Suspect]
     Dosage: 12.5 MG; TWICE A DAY;
  4. AMLODIPINE BESYLATE [Suspect]
     Dosage: 20 MG; DAILY;

REACTIONS (1)
  - SYNCOPE [None]
